FAERS Safety Report 6087506-7 (Version None)
Quarter: 2009Q1

REPORT INFORMATION
  Report Type: 
  Country: None (occurrence: None)
  Receive Date: 20090219
  Receipt Date: 20090202
  Transmission Date: 20090719
  Serious: Yes (Death)
  Sender: FDA-Public Use
  Company Number: CHPA2009US01869

PATIENT
  Age: 34 Year
  Sex: Female

DRUGS (5)
  1. ACETYLSALICYLIC ACID SRT [Suspect]
     Dosage: ORAL
     Route: 048
  2. DIPHENHYDRAMINE HCL [Suspect]
     Dosage: ORAL
     Route: 048
  3. LORATADINE [Suspect]
     Dosage: ORAL
     Route: 048
  4. ACETAMINOPHEN [Suspect]
     Dosage: ORAL
     Route: 048
  5. IBUPROFEN [Suspect]
     Dosage: ORAL
     Route: 048

REACTIONS (2)
  - COMPLETED SUICIDE [None]
  - POISONING DELIBERATE [None]
